FAERS Safety Report 10075788 (Version 1)
Quarter: 2014Q2

REPORT INFORMATION
  Report Type: Spontaneous
  Country: IT (occurrence: IT)
  Receive Date: 20140414
  Receipt Date: 20140414
  Transmission Date: 20141212
  Serious: Yes (Hospitalization, Other)
  Sender: FDA-Public Use
  Company Number: IT-ELI_LILLY_AND_COMPANY-IT201404000563

PATIENT
  Age: 74 Year
  Sex: Female

DRUGS (11)
  1. HUMALOG LISPRO [Suspect]
     Indication: TYPE 2 DIABETES MELLITUS
     Dosage: 36 IU, QD
     Route: 058
     Dates: start: 20120101, end: 20130722
  2. DELORAZEPAM [Concomitant]
     Dosage: 8 DF, UNK
     Route: 048
  3. ALIFLUS [Concomitant]
     Dosage: 2 DF, UNK
     Route: 055
  4. CLENIL                             /00212602/ [Concomitant]
  5. NEXIUM                             /01479302/ [Concomitant]
     Route: 048
  6. TRIATEC                            /00885601/ [Concomitant]
     Route: 048
  7. TORVAST [Concomitant]
     Route: 048
  8. LASIX                              /00032601/ [Concomitant]
     Dosage: 2 DF, UNK
     Route: 048
  9. LUVION                             /00252501/ [Concomitant]
     Route: 048
  10. COUMADIN                           /00014802/ [Concomitant]
     Route: 048
  11. DILATREND [Concomitant]
     Dosage: 2 DF, UNK
     Route: 048

REACTIONS (3)
  - Renal failure [Unknown]
  - Hyperkalaemia [Unknown]
  - Hypoglycaemia [Unknown]
